FAERS Safety Report 4771245-6 (Version None)
Quarter: 2005Q3

REPORT INFORMATION
  Report Type: 
  Country: None (occurrence: None)
  Receive Date: 20050912
  Receipt Date: 20050805
  Transmission Date: 20060218
  Serious: No
  Sender: FDA-Public Use
  Company Number: 2005-01536

PATIENT
  Age: 60 Year
  Sex: Female

DRUGS (4)
  1. VELCADE [Suspect]
     Indication: MULTIPLE MYELOMA
     Dosage: 2.30 MG, IV BOLUS
     Route: 040
     Dates: start: 20050621, end: 20050715
  2. MS CONTIN [Concomitant]
  3. LORTAB [Concomitant]
  4. SEROQUEL [Concomitant]

REACTIONS (2)
  - INFUSION SITE PAIN [None]
  - INFUSION SITE REACTION [None]
